FAERS Safety Report 4343810-1 (Version None)
Quarter: 2004Q2

REPORT INFORMATION
  Report Type: 
  Country: None (occurrence: None)
  Receive Date: 20040419
  Receipt Date: 20040406
  Transmission Date: 20050107
  Serious: Yes (Hospitalization)
  Sender: FDA-Public Use
  Company Number: 205728

PATIENT
  Age: 52 Year
  Sex: Female

DRUGS (16)
  1. HERCEPTIN [Suspect]
     Indication: BREAST CANCER
     Dosage: 318 MG, SINGLE, INTRAVENOUS : 160 MG, 1/WEEK, INTRAVENOUS
     Route: 042
     Dates: start: 20040322, end: 20040322
  2. HERCEPTIN [Suspect]
     Indication: BREAST CANCER
     Dosage: 318 MG, SINGLE, INTRAVENOUS : 160 MG, 1/WEEK, INTRAVENOUS
     Route: 042
     Dates: start: 20040329
  3. TAXOL [Suspect]
     Indication: BREAST CANCER
     Dosage: 428 MG, Q3W, INTRAVENOUS
     Route: 042
     Dates: start: 20040323
  4. DURAGESIC PATCH (FENTANYL CITRATE) [Concomitant]
  5. LEVOXYL [Concomitant]
  6. PREVACID [Concomitant]
  7. CYTOTEC [Concomitant]
  8. SINGULAIR [Concomitant]
  9. MIGRANOL (CAFFEINE, ERGOTAMINE TARTRATE, MECLIZINE HYDROCHLORIDE) [Concomitant]
  10. DUONEB (ALBUTEROL, ALBUTEROL SULFATE, IPRATROPIUM BROMIDE) [Concomitant]
  11. ADVAIR (SALMETEROL XINAFOATE, FLUTICASONE PROPIONATE) [Concomitant]
  12. ATIVAN [Concomitant]
  13. ADDERALL XR 10 [Concomitant]
  14. TOPAMAX [Concomitant]
  15. RISPERDAL [Concomitant]
  16. PAXIL CR [Concomitant]

REACTIONS (9)
  - ASTHENIA [None]
  - BLOOD GLUCOSE INCREASED [None]
  - BLOOD POTASSIUM DECREASED [None]
  - BRONCHITIS [None]
  - FEBRILE NEUTROPENIA [None]
  - HAEMOGLOBIN DECREASED [None]
  - HEART RATE INCREASED [None]
  - HERPES ZOSTER [None]
  - PNEUMONIA VIRAL [None]
